FAERS Safety Report 9081751 (Version 1)
Quarter: 2013Q1

REPORT INFORMATION
  Report Type: Report from Study
  Country: CA (occurrence: CA)
  Receive Date: 20130131
  Receipt Date: 20130131
  Transmission Date: 20140127
  Serious: Yes (Other)
  Sender: FDA-Public Use
  Company Number: CA-JNJFOC-20130100527

PATIENT
  Age: 48 Year
  Sex: Male
  Weight: 83 kg

DRUGS (1)
  1. REMICADE [Suspect]
     Indication: PSORIASIS
     Route: 042
     Dates: start: 20120402

REACTIONS (5)
  - Polyp [Unknown]
  - Dysuria [Unknown]
  - Micturition urgency [Unknown]
  - Hypoaesthesia [Unknown]
  - Rash pruritic [Unknown]
